FAERS Safety Report 16154870 (Version 1)
Quarter: 2019Q2

REPORT INFORMATION
  Report Type: Spontaneous
  Country: US (occurrence: US)
  Receive Date: 20190403
  Receipt Date: 20190403
  Transmission Date: 20190711
  Serious: Yes (Other)
  Sender: FDA-Public Use
  Company Number: US-NAPPMUNDI-USA-2019-0146706

PATIENT
  Sex: Male

DRUGS (2)
  1. OXYCODONE HYDROCHLORIDE (SIMILAR TO NDA 22-272) [Suspect]
     Active Substance: OXYCODONE HYDROCHLORIDE
     Indication: PAIN
     Dosage: UNK
     Route: 048
  2. FENTANYL. [Suspect]
     Active Substance: FENTANYL
     Indication: PAIN
     Dosage: UNK
     Route: 062

REACTIONS (15)
  - Hyperhidrosis [Unknown]
  - Depression [Unknown]
  - Feeling cold [Unknown]
  - Hot flush [Unknown]
  - Headache [Unknown]
  - Drug dependence [Recovered/Resolved]
  - Paranoia [Unknown]
  - Pain [Unknown]
  - Myalgia [Unknown]
  - Social avoidant behaviour [Unknown]
  - Mental impairment [Unknown]
  - Surgery [Unknown]
  - Fatigue [Unknown]
  - Inadequate analgesia [Unknown]
  - Nausea [Unknown]
